FAERS Safety Report 4356582-1 (Version None)
Quarter: 2004Q2

REPORT INFORMATION
  Report Type: 
  Country: None (occurrence: None)
  Receive Date: 20040507
  Receipt Date: 20040419
  Transmission Date: 20050107
  Serious: Yes (Other)
  Sender: FDA-Public Use
  Company Number: EWC040439000

PATIENT
  Age: 80 Year
  Sex: Female

DRUGS (5)
  1. CEFACLOR [Suspect]
     Indication: PROPHYLAXIS
     Dosage: 750 MG/2 DAY
     Dates: start: 20040408, end: 20040410
  2. OMEPRAZOLE [Concomitant]
  3. VITAMIN B COMPLEX CAP [Concomitant]
  4. DNS WITH MULTIVITAMIN COMPLEX [Concomitant]
  5. NIMESULIDE [Concomitant]

REACTIONS (3)
  - DYSPHAGIA [None]
  - ERYTHEMA [None]
  - GLOSSITIS [None]
